FAERS Safety Report 13086963 (Version 1)
Quarter: 2017Q1

REPORT INFORMATION
  Report Type: Spontaneous
  Country: TW (occurrence: TW)
  Receive Date: 20170105
  Receipt Date: 20170105
  Transmission Date: 20170428
  Serious: Yes (Other)
  Sender: FDA-Public Use
  Company Number: PHHY2016TW181005

PATIENT

DRUGS (1)
  1. AFINITOR [Suspect]
     Active Substance: EVEROLIMUS
     Indication: RENAL CELL CARCINOMA
     Dosage: 10 MG, QD
     Route: 065
     Dates: start: 201505, end: 201605

REACTIONS (9)
  - Malignant neoplasm progression [Unknown]
  - Metastases to liver [Unknown]
  - Hyperlipidaemia [Unknown]
  - Cough [Unknown]
  - Ascites [Unknown]
  - Metastases to bone [Unknown]
  - Proteinuria [Unknown]
  - Mucosal inflammation [Unknown]
  - Blood glucose increased [Unknown]
